FAERS Safety Report 8347971-9 (Version None)
Quarter: 2012Q2

REPORT INFORMATION
  Report Type: 
  Country: None (occurrence: None)
  Receive Date: 20120509
  Receipt Date: 20120501
  Transmission Date: 20120825
  Serious: Yes (Other)
  Sender: FDA-Public Use
  Company Number: US-ELI_LILLY_AND_COMPANY-US201205000643

PATIENT
  Age: 45 Year
  Sex: Female

DRUGS (3)
  1. EFFIENT [Suspect]
     Dosage: 20 MG, QD
  2. COUMADIN [Concomitant]
  3. ASPIRIN [Concomitant]
     Dosage: 325 MG, QD

REACTIONS (2)
  - OFF LABEL USE [None]
  - THROMBOSIS IN DEVICE [None]
